FAERS Safety Report 6491739-5 (Version None)
Quarter: 2009Q4

REPORT INFORMATION
  Report Type: 
  Country: None (occurrence: None)
  Receive Date: 20091208
  Receipt Date: 20091125
  Transmission Date: 20100525
  Serious: Yes (Hospitalization, Other)
  Sender: FDA-Public Use
  Company Number: 1000009815

PATIENT
  Age: 36 Year
  Sex: Male
  Weight: 99 kg

DRUGS (6)
  1. ESCITALOPRAM [Suspect]
     Indication: ANXIETY
     Dosage: 20 MG (20 MG, 1 IN 1 D),ORAL
     Route: 048
     Dates: start: 20060401, end: 20090201
  2. ESCITALOPRAM [Suspect]
     Indication: DEPRESSION
     Dosage: 20 MG (20 MG, 1 IN 1 D),ORAL
     Route: 048
     Dates: start: 20060401, end: 20090201
  3. ESCITALOPRAM [Suspect]
     Indication: ANXIETY
     Dosage: 15 MG (15 MG, 1 IN 1 D),ORAL
     Route: 048
     Dates: start: 20090801
  4. ESCITALOPRAM [Suspect]
     Indication: DEPRESSION
     Dosage: 15 MG (15 MG, 1 IN 1 D),ORAL
     Route: 048
     Dates: start: 20090801
  5. RIVOTRIL (TABLETS) [Suspect]
     Dosage: 1 MG, (0.5 MG,2 IN A D),ORAL
     Route: 048
     Dates: start: 20060401, end: 20090201
  6. RIVOTRIL (TABLETS) [Suspect]
     Dosage: 1 MG (0.5 MG, 2 IN 1 D), ORAL
     Route: 048
     Dates: start: 20090801

REACTIONS (6)
  - BLOOD CHOLESTEROL INCREASED [None]
  - BLOOD IRON INCREASED [None]
  - GYNAECOMASTIA [None]
  - HIATUS HERNIA [None]
  - LABORATORY TEST ABNORMAL [None]
  - MENTAL DISORDER [None]
